FAERS Safety Report 7535577-0 (Version None)
Quarter: 2011Q2

REPORT INFORMATION
  Report Type: 
  Country: None (occurrence: None)
  Receive Date: 20110609
  Receipt Date: 20110526
  Transmission Date: 20111010
  Serious: Yes (Other)
  Sender: FDA-Public Use
  Company Number: US-BAYER-201034856NA

PATIENT
  Sex: Female
  Weight: 56.689 kg

DRUGS (24)
  1. PHENERGAN [Concomitant]
     Indication: VOMITING
  2. MARIJUANA [Concomitant]
     Dosage: UNK
     Dates: start: 20080401
  3. YASMIN [Suspect]
     Indication: PRODUCT USED FOR UNKNOWN INDICATION
     Dosage: UNK
     Route: 048
     Dates: start: 20060101, end: 20090101
  4. DEPO-PROVERA [Concomitant]
  5. LORA TAB [Concomitant]
     Indication: HEADACHE
     Dosage: 10 MG, UNK
     Dates: start: 20070501
  6. ROBAXIN [Concomitant]
     Dosage: 750 MG, TID
  7. PHENERGAN [Concomitant]
     Indication: NAUSEA
     Dosage: 25 MG, PRN
  8. SEROQUEL [Concomitant]
     Indication: ANXIETY
  9. XANAX [Concomitant]
     Indication: ANXIETY
  10. IBUPROFEN (ADVIL) [Concomitant]
     Indication: HEADACHE
     Dosage: UNK UNK, PRN
     Dates: start: 20060301
  11. METHADONE HCL [Concomitant]
     Indication: MULTIPLE SCLEROSIS
  12. TOPAMAX [Concomitant]
     Indication: HEADACHE
     Dosage: 25 MG, UNK
     Route: 048
     Dates: start: 20061101
  13. TAPAZOLE [Concomitant]
     Indication: HYPERTHYROIDISM
     Dosage: UNK
     Dates: start: 20070406
  14. SEROQUEL [Concomitant]
     Indication: DEPRESSION
     Dosage: 25 MG, TID
     Dates: start: 20070501
  15. ZOLOFT [Concomitant]
     Indication: DEPRESSION
     Dosage: 150 MG, QD
     Dates: start: 20070501
  16. ACETAMINOPHEN [Concomitant]
     Indication: HEADACHE
     Dosage: UNK UNK, PRN
     Dates: start: 20060301
  17. DEPAKOTE ER [Concomitant]
     Indication: HEADACHE
     Dosage: 500 MG, HS
     Dates: start: 20060301
  18. MOTRIN [Concomitant]
  19. ZOLOFT [Concomitant]
     Indication: ANXIETY
  20. XANAX [Concomitant]
     Indication: DEPRESSION
     Dosage: 1 MG, QID
     Dates: start: 20070501
  21. NADOLOL [Concomitant]
     Indication: HEADACHE
     Dosage: 10 MG, QD
     Dates: start: 20060301
  22. YAZ [Suspect]
     Indication: PRODUCT USED FOR UNKNOWN INDICATION
     Dosage: UNK
     Route: 048
     Dates: start: 20060101, end: 20090101
  23. NUVARING [Concomitant]
     Dosage: UNK
     Dates: start: 20070101
  24. LORA TAB [Concomitant]
     Indication: BACK PAIN

REACTIONS (3)
  - GALLBLADDER ENLARGEMENT [None]
  - CHOLECYSTITIS ACUTE [None]
  - NEPHROLITHIASIS [None]
